FAERS Safety Report 6268414-5 (Version None)
Quarter: 2009Q3

REPORT INFORMATION
  Report Type: 
  Country: None (occurrence: None)
  Receive Date: 20090713
  Receipt Date: 20090713
  Transmission Date: 20100115
  Serious: Yes (Death)
  Sender: FDA-Public Use
  Company Number: None

PATIENT
  Sex: Female
  Weight: 83.1 kg

DRUGS (1)
  1. MEMANTINE HCL [Suspect]
     Dosage: 680 MG

REACTIONS (2)
  - ASTHENIA [None]
  - UNRESPONSIVE TO STIMULI [None]
